FAERS Safety Report 5033011-6 (Version None)
Quarter: 2006Q2

REPORT INFORMATION
  Report Type: 
  Country: None (occurrence: None)
  Receive Date: 20060622
  Receipt Date: 20060514
  Transmission Date: 20061013
  Serious: Yes (Hospitalization, Other)
  Sender: FDA-Public Use
  Company Number: JP-MERCK-0605USA03882

PATIENT
  Age: 65 Year
  Sex: Female
  Weight: 46 kg

DRUGS (7)
  1. FOSAMAX [Suspect]
     Indication: OSTEOPOROSIS
     Route: 048
     Dates: start: 20060216, end: 20060412
  2. WARFARIN [Concomitant]
     Route: 048
     Dates: start: 20060201
  3. DIOVAN [Concomitant]
     Route: 048
     Dates: start: 20060201
  4. STREPTOMYCIN SULFATE [Concomitant]
     Route: 048
     Dates: start: 20060201
  5. LIPITOR [Concomitant]
     Route: 048
     Dates: start: 20060201
  6. SOTALOL HCL [Concomitant]
     Route: 048
     Dates: start: 20060201
  7. LORAZEPAM [Concomitant]
     Route: 048
     Dates: start: 20060201

REACTIONS (4)
  - ANAEMIA [None]
  - DECREASED APPETITE [None]
  - PYREXIA [None]
  - SHOULDER PAIN [None]
